FAERS Safety Report 8378848-0 (Version None)
Quarter: 2012Q2

REPORT INFORMATION
  Report Type: 
  Country: None (occurrence: None)
  Receive Date: 20120523
  Receipt Date: 20120517
  Transmission Date: 20120825
  Serious: Yes (Hospitalization)
  Sender: FDA-Public Use
  Company Number: US-SP-2012-00343

PATIENT
  Sex: Male

DRUGS (2)
  1. LISINOPRIL [Concomitant]
     Indication: HYPERTENSION
  2. THERACYS [Suspect]
     Indication: BLADDER CANCER
     Dosage: MAINTENANCE TREATMENT
     Route: 043
     Dates: start: 20111205

REACTIONS (11)
  - HYPOPNOEA [None]
  - DYSPNOEA [None]
  - COUGH [None]
  - PYREXIA [None]
  - HYPONATRAEMIA [None]
  - NIGHT SWEATS [None]
  - PNEUMOTHORAX [None]
  - CHEST DISCOMFORT [None]
  - BOVINE TUBERCULOSIS [None]
  - IRON DEFICIENCY ANAEMIA [None]
  - INFLUENZA LIKE ILLNESS [None]
